FAERS Safety Report 15525748 (Version 1)
Quarter: 2018Q4

REPORT INFORMATION
  Report Type: Spontaneous
  Country: FR (occurrence: FR)
  Receive Date: 20181019
  Receipt Date: 20181019
  Transmission Date: 20190205
  Serious: Yes (Other)
  Sender: FDA-Public Use
  Company Number: FR-ASCEND THERAPEUTICS-2056504

PATIENT
  Age: 37 Year
  Sex: Female

DRUGS (3)
  1. ANDROCUR (CYPROTERONE ACETATE) [Suspect]
     Active Substance: CYPROTERONE ACETATE
     Route: 048
     Dates: start: 2009, end: 201108
  2. ANDROCUR (CYPROTERONE ACETATE) [Suspect]
     Active Substance: CYPROTERONE ACETATE
     Route: 048
     Dates: start: 1998, end: 2009
  3. ESTROGEL [Suspect]
     Active Substance: ESTRADIOL
     Indication: HOT FLUSH
     Route: 003

REACTIONS (1)
  - Meningioma [Not Recovered/Not Resolved]

NARRATIVE: CASE EVENT DATE: 1995
